FAERS Safety Report 9853499 (Version 3)
Quarter: 2014Q1

REPORT INFORMATION
  Report Type: Spontaneous
  Country: JP (occurrence: JP)
  Receive Date: 20140129
  Receipt Date: 20140321
  Transmission Date: 20141002
  Serious: Yes (Hospitalization)
  Sender: FDA-Public Use
  Company Number: JP-GLAXOSMITHKLINE-B0964091A

PATIENT
  Age: 63 Year
  Sex: Male

DRUGS (8)
  1. LAMICTAL [Suspect]
     Indication: PROPHYLAXIS
     Dosage: 25MG ALTERNATE DAYS
     Route: 048
     Dates: start: 20131101, end: 201311
  2. LAMICTAL [Suspect]
     Indication: PROPHYLAXIS
     Dosage: 25MG PER DAY
     Route: 048
     Dates: start: 20131112
  3. LAMICTAL [Suspect]
     Indication: PROPHYLAXIS
     Route: 048
     Dates: start: 20131126
  4. LAMICTAL [Suspect]
     Indication: PROPHYLAXIS
     Route: 048
     Dates: start: 20131203
  5. LAMICTAL [Suspect]
     Indication: PROPHYLAXIS
     Dosage: 50MG TWICE PER DAY
     Route: 048
     Dates: start: 20131210, end: 20140108
  6. XYZAL TABLET [Suspect]
     Indication: PRODUCT USED FOR UNKNOWN INDICATION
     Dosage: 5MG PER DAY
     Route: 048
     Dates: start: 20140108, end: 20140115
  7. EXCEGRAN [Suspect]
     Indication: PROPHYLAXIS
     Dosage: 100MG TWICE PER DAY
     Route: 048
     Dates: start: 20131018, end: 20140108
  8. TEMODAL [Concomitant]
     Indication: CHEMOTHERAPY
     Dosage: 120MG PER DAY
     Route: 048
     Dates: start: 20131107, end: 20131218

REACTIONS (4)
  - Toxic skin eruption [Recovering/Resolving]
  - Liver disorder [Recovering/Resolving]
  - Rash pruritic [Recovering/Resolving]
  - Drug eruption [Recovering/Resolving]
